FAERS Safety Report 14532611 (Version 1)
Quarter: 2018Q1

REPORT INFORMATION
  Report Type: Spontaneous
  Country: US (occurrence: US)
  Receive Date: 20180213
  Receipt Date: 20180213
  Transmission Date: 20180509
  Serious: No
  Sender: FDA-Public Use
  Company Number: None

PATIENT
  Age: 59 Year
  Sex: Male

DRUGS (1)
  1. SUTENT [Suspect]
     Active Substance: SUNITINIB MALATE
     Indication: RENAL CANCER
     Dosage: 37.5 MG ONCE A DAY FOR 14 DAYS THEN 7 DAYS OFF BY MOUTH
     Route: 048
     Dates: start: 20180131

REACTIONS (3)
  - Fatigue [None]
  - Chills [None]
  - Tenderness [None]

NARRATIVE: CASE EVENT DATE: 20180207
